FAERS Safety Report 6189954-3 (Version None)
Quarter: 2009Q2

REPORT INFORMATION
  Report Type: 
  Country: None (occurrence: None)
  Receive Date: 20090514
  Receipt Date: 20090504
  Transmission Date: 20091009
  Serious: Yes (Other)
  Sender: FDA-Public Use
  Company Number: PHHY2009DE17434

PATIENT
  Age: 18 Year
  Sex: Male

DRUGS (2)
  1. RITALIN LA [Suspect]
     Dosage: 20 MG/DAY
     Route: 048
  2. RITALIN [Suspect]

REACTIONS (2)
  - ASPARTATE AMINOTRANSFERASE INCREASED [None]
  - BLOOD LACTATE DEHYDROGENASE INCREASED [None]
